FAERS Safety Report 24007379 (Version 1)
Quarter: 2024Q2

REPORT INFORMATION
  Report Type: Spontaneous
  Country: US (occurrence: US)
  Receive Date: 20240625
  Receipt Date: 20240625
  Transmission Date: 20240716
  Serious: Yes (Other)
  Sender: FDA-Public Use
  Company Number: US-009507513-2406USA006974

PATIENT
  Age: 55 Year
  Sex: Male

DRUGS (1)
  1. CUBICIN [Suspect]
     Active Substance: DAPTOMYCIN
     Indication: Osteomyelitis
     Dosage: 6 MG/KG/DAY

REACTIONS (2)
  - Pulmonary toxicity [Recovering/Resolving]
  - Product use in unapproved indication [Unknown]
